FAERS Safety Report 7927754-1 (Version None)
Quarter: 2011Q4

REPORT INFORMATION
  Report Type: 
  Country: None (occurrence: None)
  Receive Date: 20111117
  Receipt Date: 20111117
  Transmission Date: 20120403
  Serious: Yes (Hospitalization)
  Sender: FDA-Public Use
  Company Number: None

PATIENT
  Age: 71 Year
  Sex: Female

DRUGS (5)
  1. NEXIUM [Concomitant]
  2. LISINOPRIL [Concomitant]
  3. HERCEPTIN GENENTEC [Suspect]
     Indication: BREAST CANCER
     Dosage: 310MG Q2WEEKS, IV
     Route: 042
     Dates: start: 20110701, end: 20110801
  4. LOVASTATIN [Concomitant]
  5. CITALOPRAM HYDROBROMIDE [Concomitant]

REACTIONS (9)
  - NAUSEA [None]
  - DIARRHOEA [None]
  - DECREASED APPETITE [None]
  - VOMITING [None]
  - CHILLS [None]
  - PYREXIA [None]
  - FATIGUE [None]
  - WEIGHT DECREASED [None]
  - VIRAL INFECTION [None]
